FAERS Safety Report 4825574-8 (Version None)
Quarter: 2005Q4

REPORT INFORMATION
  Report Type: 
  Country: None (occurrence: None)
  Receive Date: 20051111
  Receipt Date: 20050919
  Transmission Date: 20060501
  Serious: No
  Sender: FDA-Public Use
  Company Number: US-GLAXOSMITHKLINE-A0574799A

PATIENT
  Age: 78 Year
  Sex: Male

DRUGS (6)
  1. AVODART [Suspect]
     Indication: BENIGN PROSTATIC HYPERPLASIA
     Route: 048
  2. ASPIRIN [Concomitant]
  3. CENTRUM SILVER [Concomitant]
  4. NORVASC [Concomitant]
  5. LIPITOR [Concomitant]
  6. TEVETEN [Concomitant]

REACTIONS (1)
  - PENIS DISORDER [None]
